FAERS Safety Report 14323173 (Version 1)
Quarter: 2017Q4

REPORT INFORMATION
  Report Type: Spontaneous
  Country: AU (occurrence: AU)
  Receive Date: 20171226
  Receipt Date: 20171226
  Transmission Date: 20180321
  Serious: Yes (Hospitalization)
  Sender: FDA-Public Use
  Company Number: AU-ABBVIE-17K-008-2202399-00

PATIENT
  Sex: Female

DRUGS (4)
  1. COSENTYX [Suspect]
     Active Substance: SECUKINUMAB
     Indication: PRODUCT USED FOR UNKNOWN INDICATION
     Route: 065
  2. ENBREL [Suspect]
     Active Substance: ETANERCEPT
     Indication: PSORIATIC ARTHROPATHY
     Route: 065
     Dates: start: 2017
  3. HUMIRA [Suspect]
     Active Substance: ADALIMUMAB
     Indication: PRODUCT USED FOR UNKNOWN INDICATION
     Route: 058
  4. METHOTREXATE. [Suspect]
     Active Substance: METHOTREXATE
     Indication: PRODUCT USED FOR UNKNOWN INDICATION
     Route: 065

REACTIONS (11)
  - Melanocytic naevus [Unknown]
  - Furuncle [Unknown]
  - Lower respiratory tract infection [Unknown]
  - Croup infectious [Unknown]
  - Acne [Unknown]
  - Alopecia totalis [Unknown]
  - Episcleritis [Not Recovered/Not Resolved]
  - Mouth ulceration [Unknown]
  - Drug effect decreased [Unknown]
  - Respiratory tract ulceration [Unknown]
  - Influenza [Unknown]
